FAERS Safety Report 4690602-X (Version None)
Quarter: 2005Q2

REPORT INFORMATION
  Report Type: 
  Country: None (occurrence: None)
  Receive Date: 20050615
  Receipt Date: 20050414
  Transmission Date: 20051028
  Serious: Yes (Life-Threatening, Hospitalization)
  Sender: FDA-Public Use
  Company Number: JP-SOLVAY-00305001218

PATIENT
  Age: 26015 Day
  Sex: Male

DRUGS (6)
  1. DEPROMEL 25 [Suspect]
     Indication: MAJOR DEPRESSION
     Dosage: DAILY DOSE: 150 MILLIGRAM(S)
     Route: 048
  2. DEPROMEL 25 [Suspect]
     Dosage: DAILY DOSE: 50 MILLIGRAM(S)
     Route: 048
     Dates: start: 20021101, end: 20021114
  3. DEPROMEL 25 [Interacting]
     Dosage: DAILY DOSE: 100 MILLIGRAM(S)
     Route: 048
     Dates: start: 20021115, end: 20021122
  4. SEROQUEL [Interacting]
     Indication: IRRITABILITY
     Dosage: DAILY DOSE: 200 MILLIGRAM(S)
     Route: 048
     Dates: start: 20020901, end: 20021122
  5. SEDIEL [Suspect]
     Indication: ANXIETY
     Dosage: DAILY DOSE: 20 MILLIGRAM(S)
     Route: 048
     Dates: end: 20021122
  6. SYMMETREL [Suspect]
     Indication: ILL-DEFINED DISORDER
     Dosage: DAILY DOSE: 150 MILLIGRAM(S)
     Route: 048
     Dates: end: 20021122

REACTIONS (5)
  - DRUG INTERACTION [None]
  - NEUROLEPTIC MALIGNANT SYNDROME [None]
  - PNEUMONIA [None]
  - RESPIRATORY FAILURE [None]
  - TACHYCARDIA [None]
